FAERS Safety Report 15283480 (Version 1)
Quarter: 2018Q3

REPORT INFORMATION
  Report Type: Spontaneous
  Country: US (occurrence: US)
  Receive Date: 20180816
  Receipt Date: 20180816
  Transmission Date: 20181010
  Serious: No
  Sender: FDA-Public Use
  Company Number: US-PFIZER INC-2018325016

PATIENT

DRUGS (3)
  1. ADVIL LIQUI?GELS [Suspect]
     Active Substance: IBUPROFEN
     Indication: OROPHARYNGEAL PAIN
     Dosage: 2 DF, UNK
  2. ADVIL LIQUI?GELS [Suspect]
     Active Substance: IBUPROFEN
     Indication: PAIN IN JAW
  3. ADVIL LIQUI?GELS [Suspect]
     Active Substance: IBUPROFEN
     Indication: EAR PAIN

REACTIONS (1)
  - Drug effect incomplete [Unknown]
